FAERS Safety Report 17678841 (Version 1)
Quarter: 2020Q2

REPORT INFORMATION
  Report Type: Spontaneous
  Country: FR (occurrence: FR)
  Receive Date: 20200417
  Receipt Date: 20200417
  Transmission Date: 20200714
  Serious: Yes (Other)
  Sender: FDA-Public Use
  Company Number: FR-AUROBINDO-AUR-APL-2020-018361

PATIENT
  Age: 5 Year
  Sex: Male
  Weight: 17 kg

DRUGS (3)
  1. PARACETAMOL [Suspect]
     Active Substance: ACETAMINOPHEN
     Indication: PYREXIA
     Dosage: UNK
     Route: 048
     Dates: start: 2019
  2. ORELOX [Suspect]
     Active Substance: CEFPODOXIME
     Indication: TONSILLITIS
     Dosage: UNK
     Route: 048
     Dates: start: 2019
  3. TOPLEXIL (GUAIFENESIN\OXOMEMAZINE) [Suspect]
     Active Substance: GUAIFENESIN\OXOMEMAZINE
     Indication: COUGH
     Dosage: UNK
     Route: 048
     Dates: start: 2019

REACTIONS (1)
  - Hypothermia [Recovered/Resolved]

NARRATIVE: CASE EVENT DATE: 2019
